FAERS Safety Report 8603476-9 (Version None)
Quarter: 2012Q3

REPORT INFORMATION
  Report Type: 
  Country: None (occurrence: None)
  Receive Date: 20120817
  Receipt Date: 20120807
  Transmission Date: 20120928
  Serious: Yes (Other)
  Sender: FDA-Public Use
  Company Number: CHPA2012US017835

PATIENT
  Age: 60 Year
  Sex: Female

DRUGS (1)
  1. GAS-X EXTRA STRENGTH SOFTGELS [Suspect]
     Indication: FLATULENCE
     Dosage: 1-2 SOFT GELS, AS NEEDED
     Route: 048

REACTIONS (5)
  - FLATULENCE [None]
  - DISEASE RECURRENCE [None]
  - ABDOMINAL DISTENSION [None]
  - EAR DISORDER [None]
  - DRUG INEFFECTIVE [None]
